FAERS Safety Report 5483193-7 (Version None)
Quarter: 2007Q4

REPORT INFORMATION
  Report Type: 
  Country: None (occurrence: None)
  Receive Date: 20071009
  Receipt Date: 20071005
  Transmission Date: 20080405
  Serious: Yes (Hospitalization, Other)
  Sender: FDA-Public Use
  Company Number: VISP-NO-0709S-0427

PATIENT
  Age: 68 Year
  Sex: Male

DRUGS (6)
  1. VISIPAQUE [Suspect]
     Indication: PROSTATE CANCER
     Dosage: 120 ML, SINGLE DOSE, I.V.
     Route: 042
     Dates: start: 20070918, end: 20070918
  2. SERENOA REPENS [Concomitant]
  3. IBUPROFEN [Concomitant]
  4. HESPERIDINE [Concomitant]
  5. FLUOCINOLONE ACETONIDE [Concomitant]
  6. MEGLUMINE AMIDOTRIZOATE AND SOLDIUM AMIDOTRIZOATE (GASTROGRAFIN) [Concomitant]

REACTIONS (1)
  - HEPATORENAL SYNDROME [None]
